FAERS Safety Report 9455265 (Version 3)
Quarter: 2014Q4

REPORT INFORMATION
  Report Type: Spontaneous
  Country: US (occurrence: US)
  Receive Date: 20130813
  Receipt Date: 20141226
  Transmission Date: 20150529
  Serious: Yes (Hospitalization, Other)
  Sender: FDA-Public Use
  Company Number: US-BAYER-2013-095404

PATIENT
  Age: 18 Year
  Sex: Female
  Weight: 81.63 kg

DRUGS (5)
  1. LEVAQUIN [Concomitant]
     Active Substance: LEVOFLOXACIN
  2. ONDANSETRON [Concomitant]
     Active Substance: ONDANSETRON
     Dosage: UNK
     Dates: start: 20080702
  3. VICODIN [Concomitant]
     Active Substance: ACETAMINOPHEN\HYDROCODONE BITARTRATE
  4. BENADRYL [Concomitant]
     Active Substance: DIPHENHYDRAMINE HYDROCHLORIDE
  5. YASMIN [Suspect]
     Active Substance: DROSPIRENONE\ETHINYL ESTRADIOL
     Indication: CONTRACEPTION
     Dosage: UNK
     Dates: start: 200805, end: 200808

REACTIONS (9)
  - Pulmonary embolism [Recovering/Resolving]
  - Pulmonary infarction [None]
  - Emotional distress [None]
  - Pain [Recovering/Resolving]
  - General physical health deterioration [Recovering/Resolving]
  - Injury [None]
  - Cholecystitis chronic [None]
  - Anxiety [None]
  - Pain [None]

NARRATIVE: CASE EVENT DATE: 20080820
